FAERS Safety Report 9168649 (Version 2)
Quarter: 2013Q1

REPORT INFORMATION
  Report Type: Spontaneous
  Country: FR (occurrence: FR)
  Receive Date: 20130318
  Receipt Date: 20130321
  Transmission Date: 20140127
  Serious: Yes (Life-Threatening)
  Sender: FDA-Public Use
  Company Number: FR-ASTRAZENECA-2013SE16822

PATIENT
  Age: 123 Day
  Sex: Male

DRUGS (2)
  1. SYNAGIS [Suspect]
     Route: 030
     Dates: start: 20130102
  2. SYNAGIS [Suspect]
     Route: 030
     Dates: start: 20130201

REACTIONS (3)
  - Lung infection [Unknown]
  - Respiratory syncytial virus infection [Unknown]
  - Drug ineffective [Unknown]
